FAERS Safety Report 19826153 (Version 1)
Quarter: 2021Q3

REPORT INFORMATION
  Report Type: Spontaneous
  Country: US (occurrence: US)
  Receive Date: 20210914
  Receipt Date: 20210914
  Transmission Date: 20211014
  Serious: Yes (Other)
  Sender: FDA-Public Use
  Company Number: US-CIPLA LTD.-2021US06130

PATIENT

DRUGS (6)
  1. TIVICAY [Suspect]
     Active Substance: DOLUTEGRAVIR SODIUM
     Indication: HIV INFECTION
     Dosage: 50 MG/DAY
     Route: 048
     Dates: start: 20210126
  2. ABACAVIR/LAMIVUDINE [Suspect]
     Active Substance: ABACAVIR\LAMIVUDINE
     Indication: HIV INFECTION
     Dosage: UNK, 1 TAB/CAPS, TOTAL DAILY DOSE
     Route: 048
  3. ABACAVIR/LAMIVUDINE [Suspect]
     Active Substance: ABACAVIR\LAMIVUDINE
     Dosage: UNK, 1 TAB/CAPS, TOTAL DAILY DOSE
     Route: 048
     Dates: start: 20210223
  4. EVOTAZ [Suspect]
     Active Substance: ATAZANAVIR SULFATE\COBICISTAT
     Indication: HIV INFECTION
     Dosage: UNK, 1 TAB/CAPS, TOTAL DAILY DOSE
     Route: 048
  5. ABACAVIR/LAMIVUDINE [Suspect]
     Active Substance: ABACAVIR\LAMIVUDINE
     Dosage: UNK, 1 TAB/CAPS, TOTAL DAILY DOSE
     Route: 048
     Dates: start: 20210126, end: 20210223
  6. TEVA ABACAVIR/LAMIVUDINE [Suspect]
     Active Substance: ABACAVIR\LAMIVUDINE
     Indication: HIV INFECTION
     Dosage: UNK, 1 TAB/CAPS, TOTAL DAILY DOSE
     Route: 048
     Dates: start: 20201023, end: 20210126

REACTIONS (2)
  - Placenta praevia [Unknown]
  - Exposure during pregnancy [Unknown]

NARRATIVE: CASE EVENT DATE: 2020
